FAERS Safety Report 7802564-4 (Version None)
Quarter: 2011Q4

REPORT INFORMATION
  Report Type: 
  Country: None (occurrence: None)
  Receive Date: 20111007
  Receipt Date: 20110930
  Transmission Date: 20120403
  Serious: Yes (Hospitalization)
  Sender: FDA-Public Use
  Company Number: RU-GENZYME-CAMP-1001899

PATIENT
  Sex: Male
  Weight: 59 kg

DRUGS (12)
  1. CIPROFLOXACIN [Concomitant]
     Indication: TONSILLITIS
     Dosage: UNK
     Route: 048
     Dates: start: 20110601, end: 20110601
  2. ALEMTUZUMAB [Suspect]
     Indication: MULTIPLE SCLEROSIS
     Dosage: 12 MG, QD
     Route: 042
     Dates: start: 20090505, end: 20090507
  3. METHYLPREDNISOLONE [Concomitant]
     Dosage: 1000 MG, UNK
     Route: 042
     Dates: start: 20050523, end: 20050525
  4. ALEMTUZUMAB [Suspect]
     Dosage: 12 MG, QD
     Route: 042
     Dates: start: 20040517, end: 20040521
  5. ALEMTUZUMAB [Suspect]
     Dosage: 12 MG, QD
     Route: 042
     Dates: start: 20050523, end: 20050525
  6. METHYLPREDNISOLONE [Concomitant]
     Indication: MULTIPLE SCLEROSIS
     Dosage: 1000 MG, UNK
     Route: 042
     Dates: start: 20040517, end: 20040519
  7. MILGAMMA [Concomitant]
     Indication: TONSILLITIS
     Dosage: UNK
     Dates: start: 20110601, end: 20110601
  8. HEXETIDINE [Concomitant]
     Indication: TONSILLITIS
     Dosage: UNK
     Dates: start: 20110601, end: 20110601
  9. AMOXICILLIN AND CLAVULANATE POTASSIUM [Concomitant]
     Indication: TONSILLITIS
     Dosage: 1.2 G, BID
     Route: 042
  10. METHYLPREDNISOLONE [Concomitant]
     Dosage: 1000 MG, UNK
     Route: 042
     Dates: start: 20090505, end: 20090507
  11. KETOPROFEN [Concomitant]
     Indication: PRODUCT USED FOR UNKNOWN INDICATION
     Dosage: 50 MG, ONCE
     Route: 048
     Dates: start: 20110428, end: 20110428
  12. LEVOTHYROXINE SODIUM [Concomitant]
     Indication: THYROID HORMONE REPLACEMENT THERAPY
     Dosage: 100 MCG, QD
     Route: 048
     Dates: start: 20110401

REACTIONS (1)
  - ENDOCRINE OPHTHALMOPATHY [None]
